FAERS Safety Report 10645010 (Version 1)
Quarter: 2014Q4

REPORT INFORMATION
  Report Type: Spontaneous
  Country: None (occurrence: None)
  Receive Date: 20141210
  Receipt Date: 20141210
  Transmission Date: 20150529
  Serious: Yes (Hospitalization)
  Sender: FDA-Public Use
  Company Number: None

PATIENT
  Age: 33 Year
  Sex: Male
  Weight: 92.08 kg

DRUGS (1)
  1. CLINDAMYCIN [Suspect]
     Active Substance: CLINDAMYCIN\CLINDAMYCIN PHOSPHATE
     Indication: TOOTH INFECTION
     Route: 048

REACTIONS (6)
  - Abdominal distension [None]
  - Clostridium difficile infection [None]
  - Presyncope [None]
  - Abdominal pain [None]
  - Back pain [None]
  - Diarrhoea [None]

NARRATIVE: CASE EVENT DATE: 20141203
